FAERS Safety Report 6811259-5 (Version None)
Quarter: 2010Q2

REPORT INFORMATION
  Report Type: 
  Country: None (occurrence: None)
  Receive Date: 20100630
  Receipt Date: 20091123
  Transmission Date: 20101027
  Serious: No
  Sender: FDA-Public Use
  Company Number: US-AMGEN-KDL376296

PATIENT
  Sex: Male
  Weight: 85.8 kg

DRUGS (3)
  1. EPOGEN [Suspect]
     Indication: DIALYSIS
     Dates: start: 20080101
  2. SYNTHROID [Concomitant]
  3. RENAGEL [Concomitant]

REACTIONS (3)
  - BLOOD PARATHYROID HORMONE INCREASED [None]
  - MENINGIOMA BENIGN [None]
  - MYASTHENIA GRAVIS [None]
